FAERS Safety Report 5120497-1 (Version None)
Quarter: 2006Q3

REPORT INFORMATION
  Report Type: 
  Country: None (occurrence: None)
  Receive Date: 20060928
  Receipt Date: 20060921
  Transmission Date: 20061208
  Serious: Yes (Hospitalization)
  Sender: FDA-Public Use
  Company Number: GXKR2005JP01105

PATIENT
  Age: 72 Year
  Sex: Male

DRUGS (4)
  1. RIMACTANE [Suspect]
     Indication: TUBERCULOUS PLEURISY
     Dosage: ORAL
     Route: 048
     Dates: start: 20050415, end: 20050501
  2. PYRAZINAMIDE [Suspect]
     Dates: start: 20050415, end: 20050501
  3. ETHAMBUTOL (NGX) (ETHAMBUTOL) [Suspect]
     Dates: start: 20050415, end: 20050501
  4. ISONIAZID [Suspect]
     Dates: start: 20050415, end: 20050501

REACTIONS (6)
  - BLOOD ALBUMIN DECREASED [None]
  - GLOMERULONEPHRITIS MINIMAL LESION [None]
  - HEADACHE [None]
  - NEPHROTIC SYNDROME [None]
  - RENAL FAILURE ACUTE [None]
  - TUBULOINTERSTITIAL NEPHRITIS [None]
